FAERS Safety Report 16797892 (Version 1)
Quarter: 2019Q3

REPORT INFORMATION
  Report Type: Spontaneous
  Country: GB (occurrence: GB)
  Receive Date: 20190912
  Receipt Date: 20190912
  Transmission Date: 20191005
  Serious: Yes (Other)
  Sender: FDA-Public Use
  Company Number: GB-TEVA-2019-GB-1105880

PATIENT
  Age: 73 Year
  Sex: Female
  Weight: 106 kg

DRUGS (14)
  1. FUROSEMIDE. [Concomitant]
     Active Substance: FUROSEMIDE
     Dosage: EACH MORNING, 2 DOSAGE FORM/ DAY
     Dates: start: 20180912
  2. RANITIDINE. [Concomitant]
     Active Substance: RANITIDINE
     Dosage: AT NIGHTM, 1 DOSAGE FORM / DAY
     Dates: start: 20180912
  3. DERMOL [Concomitant]
     Active Substance: BENZALKONIUM CHLORIDE\CHLORHEXIDINE HYDROCHLORIDE\ISOPROPYL MYRISTATE\PARAFFIN
     Dosage: 2 DOSAGE FORM/ DAY
     Dates: start: 20180912
  4. LISINOPRIL. [Concomitant]
     Active Substance: LISINOPRIL
     Dosage: 1 DOSAGE FORM/ DAY
     Dates: start: 20180912
  5. BETAMETHASONE VALERATE. [Concomitant]
     Active Substance: BETAMETHASONE VALERATE
     Dosage: APPLY, 2 DOSAGE FORM / DAY
     Dates: start: 20190812
  6. LEVOTHYROXINE. [Concomitant]
     Active Substance: LEVOTHYROXINE
     Dosage: 1 DOSAGE FORM/ DAY
     Dates: start: 20180912
  7. ALLOPURINOL. [Concomitant]
     Active Substance: ALLOPURINOL
     Dosage: 1 DOSAGE FORM/ DAY
     Dates: start: 20180912
  8. LOPERAMIDE [Concomitant]
     Active Substance: LOPERAMIDE
     Dosage: 3 DOSAGE FORM / DAY
     Dates: start: 20180912
  9. LORATADINE. [Concomitant]
     Active Substance: LORATADINE
     Dosage: 1 DOSAGE FORM/ DAY/ 30 DAYS
     Dates: start: 20190612, end: 20190712
  10. CLARITHROMYCIN. [Suspect]
     Active Substance: CLARITHROMYCIN
     Dosage: 500MG/ 12 HOURS
     Route: 065
     Dates: start: 20190724
  11. ACCRETE D3 [Concomitant]
     Active Substance: CALCIUM CARBONATE\CHOLECALCIFEROL
     Dosage: 2 DOSAGE FORM/ DAY
     Dates: start: 20180912
  12. TRAMADOL. [Concomitant]
     Active Substance: TRAMADOL
     Dosage: 2 DOSAGE FORM/ DAY
     Dates: start: 20180912
  13. BISOPROLOL [Concomitant]
     Active Substance: BISOPROLOL
     Dosage: EACH NIGHT, 1 DOSAGE FORM/ DAY
     Dates: start: 20180912
  14. AMOXICILLIN. [Concomitant]
     Active Substance: AMOXICILLIN
     Dosage: 3 DOSAGE FORM/ DAY/ 5 DAYS
     Dates: start: 20190531, end: 20190605

REACTIONS (2)
  - Abdominal discomfort [Unknown]
  - Diarrhoea [Recovering/Resolving]

NARRATIVE: CASE EVENT DATE: 20190815
